FAERS Safety Report 5715227-6 (Version None)
Quarter: 2008Q2

REPORT INFORMATION
  Report Type: 
  Country: None (occurrence: None)
  Receive Date: 20080423
  Receipt Date: 20080415
  Transmission Date: 20081010
  Serious: Yes (Other)
  Sender: FDA-Public Use
  Company Number: US-GENENTECH-259546

PATIENT
  Sex: Female

DRUGS (3)
  1. AVASTIN [Suspect]
     Indication: BREAST CANCER METASTATIC
  2. ABRAXANE [Concomitant]
     Indication: BREAST CANCER METASTATIC
  3. GEMZAR [Concomitant]
     Indication: BREAST CANCER METASTATIC

REACTIONS (1)
  - PNEUMOTHORAX [None]
